FAERS Safety Report 13617096 (Version 1)
Quarter: 2017Q2

REPORT INFORMATION
  Report Type: Spontaneous
  Country: US (occurrence: US)
  Receive Date: 20170606
  Receipt Date: 20170606
  Transmission Date: 20170830
  Serious: No
  Sender: FDA-Public Use
  Company Number: US-SA-2016SA185801

PATIENT
  Age: 70 Year
  Sex: Male

DRUGS (3)
  1. LANTUS SOLOSTAR [Suspect]
     Active Substance: INSULIN GLARGINE
     Indication: DIABETES MELLITUS
     Route: 065
  2. SOLOSTAR [Concomitant]
     Active Substance: DEVICE
     Indication: DIABETES MELLITUS
     Route: 065
  3. METHADONE [Concomitant]
     Active Substance: METHADONE HYDROCHLORIDE
     Route: 065

REACTIONS (13)
  - Neuropathy peripheral [Unknown]
  - Asthenia [Unknown]
  - Tremor [Unknown]
  - Pain [Unknown]
  - Depressed mood [Unknown]
  - Muscle spasms [Unknown]
  - Vomiting [Unknown]
  - Drug dose omission [Unknown]
  - Dysstasia [Unknown]
  - Blood glucose increased [Unknown]
  - Gait disturbance [Unknown]
  - Dyskinesia [Unknown]
  - Malaise [Unknown]
